FAERS Safety Report 7437309-3 (Version None)
Quarter: 2011Q2

REPORT INFORMATION
  Report Type: 
  Country: None (occurrence: None)
  Receive Date: 20110426
  Receipt Date: 20110419
  Transmission Date: 20111010
  Serious: Yes (Other)
  Sender: FDA-Public Use
  Company Number: NL-TEVA-278010ISR

PATIENT
  Sex: Female
  Weight: 82 kg

DRUGS (2)
  1. IBUPROFEN [Concomitant]
     Dosage: 600 MILLIGRAM;
     Dates: start: 20041007
  2. METHOTREXATE [Suspect]
     Indication: RHEUMATOID ARTHRITIS
     Dosage: 1 TIMES PER 1 WEEKS 25 MG
     Dates: start: 19990716, end: 20090730

REACTIONS (2)
  - NON-HODGKIN'S LYMPHOMA [None]
  - TOOTH LOSS [None]
